FAERS Safety Report 16508155 (Version 1)
Quarter: 2019Q3

REPORT INFORMATION
  Report Type: Spontaneous
  Country: US (occurrence: US)
  Receive Date: 20190702
  Receipt Date: 20190702
  Transmission Date: 20191004
  Serious: Yes (Hospitalization)
  Sender: FDA-Public Use
  Company Number: US-ROCHE-2126846

PATIENT
  Sex: Female
  Weight: 47.67 kg

DRUGS (1)
  1. XELODA [Suspect]
     Active Substance: CAPECITABINE
     Indication: BREAST CANCER
     Dosage: DAILY FOR 2 WEEKS ON, 2 WEEKS OFF, ONGOING
     Route: 048
     Dates: start: 20160121

REACTIONS (3)
  - Epistaxis [Unknown]
  - Stomatitis [Unknown]
  - Gastrointestinal haemorrhage [Unknown]
